FAERS Safety Report 24282249 (Version 1)
Quarter: 2024Q3

REPORT INFORMATION
  Report Type: Spontaneous
  Country: US (occurrence: None)
  Receive Date: 20240902
  Receipt Date: 20240902
  Transmission Date: 20241016
  Serious: Yes (Disabling)
  Sender: Public
  Company Number: None

PATIENT
  Age: 69 Year
  Sex: Male
  Weight: 83.25 kg

DRUGS (1)
  1. TEPEZZA [Suspect]
     Active Substance: TEPROTUMUMAB-TRBW
     Indication: Endocrine ophthalmopathy
     Dosage: OTHER FREQUENCY : EVERY THREE WEEKS;?
     Dates: start: 20240202, end: 20240803

REACTIONS (9)
  - Nail disorder [None]
  - Alopecia [None]
  - Alopecia [None]
  - Weight decreased [None]
  - Nausea [None]
  - Deafness [None]
  - Ageusia [None]
  - Blood glucose increased [None]
  - Dry mouth [None]

NARRATIVE: CASE EVENT DATE: 20240801
